FAERS Safety Report 25934247 (Version 1)
Quarter: 2025Q4

REPORT INFORMATION
  Report Type: Spontaneous
  Country: EU (occurrence: EU)
  Receive Date: 20251017
  Receipt Date: 20251017
  Transmission Date: 20260118
  Serious: Yes (Life-Threatening, Hospitalization)
  Sender: ACCORD
  Company Number: None

PATIENT
  Age: 8 Year
  Sex: Female
  Weight: 26 kg

DRUGS (5)
  1. METHOTREXATE [Interacting]
     Active Substance: METHOTREXATE
     Indication: Burkitt^s lymphoma
     Dates: start: 20250219, end: 20250219
  2. DOXORUBICIN [Interacting]
     Active Substance: DOXORUBICIN
     Indication: Burkitt^s lymphoma
     Dates: start: 20250220, end: 20250220
  3. METHYLPREDNISOLONE [Interacting]
     Active Substance: METHYLPREDNISOLONE
     Indication: Burkitt^s lymphoma
     Dates: start: 20250219, end: 20250226
  4. VINCRISTINE SULFATE [Interacting]
     Active Substance: VINCRISTINE SULFATE
     Indication: Burkitt^s lymphoma
     Dates: start: 20250219, end: 20250219
  5. CYCLOPHOSPHAMIDE [Interacting]
     Active Substance: CYCLOPHOSPHAMIDE
     Indication: Burkitt^s lymphoma
     Dates: start: 20250220, end: 20250222

REACTIONS (3)
  - Septic shock [Recovered/Resolved]
  - Gastrointestinal fungal infection [Recovered/Resolved]
  - Gastrointestinal haemorrhage [Recovered/Resolved]

NARRATIVE: CASE EVENT DATE: 20250301
